FAERS Safety Report 4606696-3 (Version None)
Quarter: 2005Q1

REPORT INFORMATION
  Report Type: 
  Country: None (occurrence: None)
  Receive Date: 20050311
  Receipt Date: 20050203
  Transmission Date: 20050727
  Serious: Yes (Death)
  Sender: FDA-Public Use
  Company Number: 2005S1000399

PATIENT
  Age: 82 Year
  Sex: Female

DRUGS (3)
  1. CLOZAPINE [Suspect]
     Indication: HALLUCINATION, VISUAL
     Dosage: 25 MG; BID; PO
     Route: 048
     Dates: start: 20031218, end: 20030101
  2. SINEMET [Concomitant]
  3. MIRAPEX [Concomitant]

REACTIONS (1)
  - DEATH [None]
